FAERS Safety Report 5667306-X (Version None)
Quarter: 2008Q1

REPORT INFORMATION
  Report Type: 
  Country: None (occurrence: None)
  Receive Date: 20080315
  Receipt Date: 20080116
  Transmission Date: 20080703
  Serious: No
  Sender: FDA-Public Use
  Company Number: US-ABBOTT-08P-163-0433989-00

PATIENT
  Sex: Female
  Weight: 55.388 kg

DRUGS (5)
  1. HUMIRA [Suspect]
     Indication: CROHN'S DISEASE
     Route: 058
     Dates: start: 20071126, end: 20071126
  2. HUMIRA [Suspect]
     Route: 058
  3. HUMIRA [Suspect]
     Route: 058
  4. MESALAMINE [Concomitant]
     Indication: CROHN'S DISEASE
     Route: 048
  5. RIZATRIPTAN BENZOATE [Concomitant]
     Indication: MIGRAINE
     Route: 048

REACTIONS (4)
  - BLISTER [None]
  - HERPES ZOSTER [None]
  - PRURITUS [None]
  - RASH PRURITIC [None]
